FAERS Safety Report 5416271-9 (Version None)
Quarter: 2007Q3

REPORT INFORMATION
  Report Type: 
  Country: None (occurrence: None)
  Receive Date: 20070718
  Receipt Date: 20070306
  Transmission Date: 20080115
  Serious: Yes (Hospitalization, Other)
  Sender: FDA-Public Use
  Company Number: 2007014337

PATIENT
  Age: 47 Year
  Sex: Male
  Weight: 124.7 kg

DRUGS (3)
  1. CELEBREX [Suspect]
     Indication: BACK PAIN
     Dosage: 400 MG (200 MG, 2 IN 1 D)
     Dates: start: 19990401
  2. CELEBREX [Suspect]
     Indication: CARPAL TUNNEL SYNDROME
     Dosage: 400 MG (200 MG, 2 IN 1 D)
     Dates: start: 19990401
  3. CELEBREX [Suspect]
     Indication: NECK PAIN
     Dosage: 400 MG (200 MG, 2 IN 1 D)
     Dates: start: 19990401

REACTIONS (2)
  - CEREBROVASCULAR DISORDER [None]
  - MYOCARDIAL INFARCTION [None]
